FAERS Safety Report 7917101-3 (Version None)
Quarter: 2011Q4

REPORT INFORMATION
  Report Type: 
  Country: None (occurrence: None)
  Receive Date: 20111116
  Receipt Date: 20111108
  Transmission Date: 20120403
  Serious: Yes (Life-Threatening, Hospitalization)
  Sender: FDA-Public Use
  Company Number: SE-COVIDIEN/TYCO HEALTHCARE/MALLINCKRODT-T201102582

PATIENT
  Sex: Female

DRUGS (5)
  1. SERETIDE                           /01420901/ [Concomitant]
     Dosage: 50 MG/DOS, 2GGR/DAY
  2. OPTIRAY 160 [Suspect]
     Indication: COMPUTERISED TOMOGRAM
     Dosage: 95 ML, SINGLE
     Route: 042
     Dates: start: 20111108, end: 20111108
  3. TRAMADOL HCL [Concomitant]
     Dosage: 100 MG, QD
  4. OMEGA-3                            /00931501/ [Concomitant]
     Dosage: UNK
  5. VENLAFAXINE [Concomitant]
     Dosage: 150 + 75 G/DAY

REACTIONS (3)
  - DYSPHONIA [None]
  - URTICARIA [None]
  - DYSPNOEA [None]
